FAERS Safety Report 16362310 (Version 3)
Quarter: 2019Q3

REPORT INFORMATION
  Report Type: Spontaneous
  Country: US (occurrence: US)
  Receive Date: 20190528
  Receipt Date: 20190701
  Transmission Date: 20191004
  Serious: Yes (Other)
  Sender: FDA-Public Use
  Company Number: US-PFIZER INC-2019216466

PATIENT
  Age: 90 Year
  Sex: Female

DRUGS (1)
  1. XALATAN [Suspect]
     Active Substance: LATANOPROST
     Dosage: UNK
     Dates: start: 2004, end: 201902

REACTIONS (4)
  - Visual field defect [Unknown]
  - Expired product administered [Unknown]
  - Hypoacusis [Unknown]
  - Macular degeneration [Unknown]

NARRATIVE: CASE EVENT DATE: 2016
